FAERS Safety Report 8121787-0 (Version None)
Quarter: 2011Q4

REPORT INFORMATION
  Report Type: 
  Country: None (occurrence: None)
  Receive Date: 20111227
  Receipt Date: 20111117
  Transmission Date: 20120403
  Serious: No
  Sender: FDA-Public Use
  Company Number: PHEH2011US06097

PATIENT
  Age: 63 Year
  Sex: Female

DRUGS (9)
  1. GILENYA [Suspect]
     Dosage: 1 DF, EVERYDAY, ORAL
     Route: 048
  2. CALCIUM WITH VITAMIN D (CALCIUM PHOSPHATE, CALCIUM SODIUM LACTATE, ERG [Concomitant]
  3. ASPIRIN [Concomitant]
  4. LEVOTHYROXINE SODIUM [Concomitant]
  5. ADDERALL 10 [Concomitant]
  6. POTASSIUM CHLORIDE [Concomitant]
  7. REQUIP [Concomitant]
  8. FISH OIL (FISH OIL) [Concomitant]
  9. CYMBALTA [Concomitant]

REACTIONS (1)
  - FATIGUE [None]
